FAERS Safety Report 24261909 (Version 1)
Quarter: 2024Q3

REPORT INFORMATION
  Report Type: Report from Study
  Country: US (occurrence: US)
  Receive Date: 20240829
  Receipt Date: 20240829
  Transmission Date: 20241017
  Serious: Yes (Other)
  Sender: PAREXEL
  Company Number: US-Stemline Therapeutics, Inc.-2024ST004428

PATIENT

DRUGS (3)
  1. ORSERDU [Suspect]
     Active Substance: ELACESTRANT
     Indication: Breast cancer
     Dosage: 344 MG, DAILY
     Route: 048
     Dates: start: 20240627, end: 20240715
  2. ORSERDU [Suspect]
     Active Substance: ELACESTRANT
     Dosage: TAKING 2 TABS A DAY
     Route: 048
  3. ORSERDU [Suspect]
     Active Substance: ELACESTRANT
     Dosage: 344 MG, DAILY (CYCLE 4)
     Route: 048

REACTIONS (2)
  - Loss of consciousness [Unknown]
  - Flushing [Unknown]
